FAERS Safety Report 6068413-2 (Version None)
Quarter: 2009Q1

REPORT INFORMATION
  Report Type: 
  Country: None (occurrence: None)
  Receive Date: 20090206
  Receipt Date: 20090204
  Transmission Date: 20090719
  Serious: Yes (Other)
  Sender: FDA-Public Use
  Company Number: GB-TEVA-184974ISR

PATIENT
  Sex: Female

DRUGS (2)
  1. AZITHROMYCIN [Suspect]
  2. CARBAMAZEPINE [Suspect]
     Route: 048

REACTIONS (2)
  - ATAXIA [None]
  - GAIT DISTURBANCE [None]
